FAERS Safety Report 25215643 (Version 1)
Quarter: 2025Q2

REPORT INFORMATION
  Report Type: Spontaneous
  Country: US (occurrence: US)
  Receive Date: 20250418
  Receipt Date: 20250418
  Transmission Date: 20250716
  Serious: No
  Sender: Phathom Pharmaceuticals
  Company Number: US-PHATHOM PHARMACEUTICALS INC.-2025PHT00625

PATIENT
  Age: 64 Year
  Sex: Female

DRUGS (4)
  1. VOQUEZNA [Suspect]
     Active Substance: VONOPRAZAN FUMARATE
     Dosage: 20 MG, 1X/DAY
     Route: 048
     Dates: start: 20240709
  2. SOTALOL [Concomitant]
     Active Substance: SOTALOL
  3. METOPROLOL SUCCINATE [Concomitant]
     Active Substance: METOPROLOL SUCCINATE
  4. ATORVASTATIN [Concomitant]
     Active Substance: ATORVASTATIN

REACTIONS (4)
  - Electrocardiogram abnormal [Unknown]
  - Diastolic dysfunction [Unknown]
  - Dyspnoea [Unknown]
  - Blood pressure increased [Unknown]
